FAERS Safety Report 26204667 (Version 1)
Quarter: 2025Q4

REPORT INFORMATION
  Report Type: Spontaneous
  Country: EU (occurrence: EU)
  Receive Date: 20251227
  Receipt Date: 20251227
  Transmission Date: 20260118
  Serious: Yes (Hospitalization, Other)
  Sender: AUROBINDO
  Company Number: EU-AFSSAPS-NY2025001910

PATIENT
  Age: 73 Year
  Sex: Male
  Weight: 65 kg

DRUGS (4)
  1. BISOPROLOL [Suspect]
     Active Substance: BISOPROLOL
     Indication: Cardiac failure
     Dosage: 2.5 MILLIGRAM, ONCE A DAY
     Route: 061
     Dates: start: 2022, end: 20251116
  2. EPLERENONE [Suspect]
     Active Substance: EPLERENONE
     Indication: Cardiac failure
     Dosage: 25 MILLIGRAM, ONCE A DAY
     Route: 061
     Dates: start: 2022, end: 20251116
  3. ENTRESTO [Suspect]
     Active Substance: SACUBITRIL\VALSARTAN
     Indication: Cardiac failure
     Dosage: 25 MILLIGRAM, ONCE A DAY
     Route: 061
     Dates: start: 2022, end: 20251116
  4. FLUINDIONE [Concomitant]
     Active Substance: FLUINDIONE
     Indication: Cardiovascular event prophylaxis
     Dosage: 5 MILLIGRAM, EVERY 3 DAYS
     Route: 061

REACTIONS (1)
  - Vasoplegia syndrome [Recovering/Resolving]

NARRATIVE: CASE EVENT DATE: 20251109
